FAERS Safety Report 8318653-4 (Version None)
Quarter: 2012Q2

REPORT INFORMATION
  Report Type: 
  Country: None (occurrence: None)
  Receive Date: 20120427
  Receipt Date: 20120425
  Transmission Date: 20120825
  Serious: Yes (Life-Threatening)
  Sender: FDA-Public Use
  Company Number: FR-B.I. PHARMACEUTICALS,INC./RIDGEFIELD-2011-FF-00565FF

PATIENT
  Sex: Female
  Weight: 67 kg

DRUGS (5)
  1. POLYETHYLENE GLYCOL [Concomitant]
     Indication: CONSTIPATION
     Route: 048
     Dates: start: 20110601, end: 20110608
  2. TRAMADOL HCL [Concomitant]
     Indication: PAIN
     Dosage: 200 MG
     Route: 042
     Dates: start: 20110531
  3. MORPHINE [Concomitant]
     Indication: PAIN
     Dosage: 30 MG
     Dates: start: 20110531, end: 20110602
  4. MORPHINE SULFATE [Concomitant]
     Indication: SLEEP DISORDER
     Route: 048
     Dates: start: 20110601, end: 20110608
  5. PRADAXA [Suspect]
     Indication: PROPHYLAXIS
     Dosage: 220 MG
     Route: 048
     Dates: start: 20110601, end: 20110601

REACTIONS (1)
  - DEEP VEIN THROMBOSIS [None]
